FAERS Safety Report 8925328 (Version 1)
Quarter: 2012Q4

REPORT INFORMATION
  Report Type: 
  Country: US (occurrence: US)
  Receive Date: 20121126
  Receipt Date: 20121126
  Transmission Date: 20130627
  Serious: Yes (Hospitalization)
  Sender: FDA-Public Use
  Company Number: US-MERCK-1211USA009214

PATIENT

DRUGS (1)
  1. SAPHRIS [Suspect]
     Dosage: 10mg in the morning and 15 mg at bedtime

REACTIONS (3)
  - Hyponatraemia [Unknown]
  - Fall [Unknown]
  - Incorrect dose administered [Unknown]
